FAERS Safety Report 23595566 (Version 1)
Quarter: 2024Q1

REPORT INFORMATION
  Report Type: Spontaneous
  Country: US (occurrence: US)
  Receive Date: 20240305
  Receipt Date: 20240305
  Transmission Date: 20240410
  Serious: Yes (Other)
  Sender: FDA-Public Use
  Company Number: US-BRISTOL-MYERS SQUIBB COMPANY-2024-033839

PATIENT
  Age: 57 Year
  Sex: Male
  Weight: 127.91 kg

DRUGS (1)
  1. LENALIDOMIDE [Suspect]
     Active Substance: LENALIDOMIDE
     Indication: Plasma cell myeloma
     Route: 048
     Dates: start: 2017

REACTIONS (2)
  - Nasopharyngitis [Recovered/Resolved]
  - Intracardiac thrombus [Recovered/Resolved]
